FAERS Safety Report 18509296 (Version 2)
Quarter: 2020Q4

REPORT INFORMATION
  Report Type: Spontaneous
  Country: CA (occurrence: CA)
  Receive Date: 20201117
  Receipt Date: 20201123
  Transmission Date: 20210114
  Serious: Yes (Other)
  Sender: FDA-Public Use
  Company Number: CA-JNJFOC-20201118361

PATIENT
  Age: 38 Year
  Sex: Female

DRUGS (2)
  1. INFLIXIMAB, RECOMBINANT [Suspect]
     Active Substance: INFLIXIMAB
     Indication: COLITIS ULCERATIVE
     Route: 042
  2. ASACOL [Suspect]
     Active Substance: MESALAMINE
     Indication: PRODUCT USED FOR UNKNOWN INDICATION
     Dosage: TABLET (ENTERIC COATED)
     Route: 065

REACTIONS (8)
  - Decreased appetite [Unknown]
  - Unevaluable event [Unknown]
  - Drug ineffective [Unknown]
  - Abdominal pain [Unknown]
  - Haemorrhage [Unknown]
  - Anaemia [Unknown]
  - Abdominal distension [Unknown]
  - Fatigue [Unknown]
